FAERS Safety Report 5100313-4 (Version None)
Quarter: 2006Q3

REPORT INFORMATION
  Report Type: 
  Country: None (occurrence: None)
  Receive Date: 20060731
  Receipt Date: 20060522
  Transmission Date: 20061208
  Serious: No
  Sender: FDA-Public Use
  Company Number: 2006PV014300

PATIENT
  Age: 71 Year
  Sex: Male
  Weight: 89.8122 kg

DRUGS (1)
  1. BYETTA [Suspect]
     Indication: DIABETES MELLITUS NON-INSULIN-DEPENDENT
     Dosage: 5 MCG;BID;SC
     Route: 058
     Dates: start: 20060502

REACTIONS (3)
  - INFREQUENT BOWEL MOVEMENTS [None]
  - VOMITING [None]
  - WEIGHT DECREASED [None]
